FAERS Safety Report 15841907 (Version 3)
Quarter: 2019Q1

REPORT INFORMATION
  Report Type: Spontaneous
  Country: KR (occurrence: KR)
  Receive Date: 20190118
  Receipt Date: 20190130
  Transmission Date: 20190417
  Serious: Yes (Death, Other)
  Sender: FDA-Public Use
  Company Number: KR-009507513-1901KOR005125

PATIENT
  Sex: Female

DRUGS (44)
  1. DEXTROSE. [Concomitant]
     Active Substance: DEXTROSE
     Dosage: 50 MILLILITER (QUANTITY:4 AND DAY:8)
     Dates: start: 20181122, end: 20181127
  2. DEXTROSE. [Concomitant]
     Active Substance: DEXTROSE
     Dosage: 50 MILLILITER (QUANTITY:3 AND DAY:6)
     Dates: start: 20181128, end: 20181202
  3. PERIDOL (HALOPERIDOL) [Concomitant]
     Dosage: STRENGTH 5 MILLIGRAM PER MILLILITRE (QUANTITY:1, DAY: 23)
     Dates: start: 20181111
  4. SMOFKABIVEN [Concomitant]
     Active Substance: AMINO ACIDS\DEXTROSE\ELECTROLYTES NOS\SOYBEAN OIL
     Dosage: UNK (QUANTITY 1 AND DAY 13)
     Dates: start: 20181121, end: 20181203
  5. WINUF PERI [Concomitant]
     Dosage: STRENGTH 1085 ML (QUANTITY:1, DAY: 8)
     Dates: start: 20181113, end: 20181120
  6. SODIUM CHLORIDE. [Concomitant]
     Active Substance: SODIUM CHLORIDE
  7. ATIVAN [Concomitant]
     Active Substance: LORAZEPAM
     Dosage: INJECTION (QUANTITY:3, DAY: 2)
     Dates: start: 20181128, end: 20181202
  8. SODIUM CHLORIDE. [Concomitant]
     Active Substance: SODIUM CHLORIDE
     Dosage: 100 MILLILITER (QUANTITY: 1, DAY 3)
     Dates: start: 20181125, end: 20181127
  9. DEXTROSE. [Concomitant]
     Active Substance: DEXTROSE
     Dosage: 100 MILLILITER (QUANTITY:1 AND DAY:12)
     Dates: start: 20181126, end: 20181207
  10. DENOGAN [Concomitant]
     Active Substance: PROPACETAMOL HYDROCHLORIDE
     Dosage: UNK (QUANTITY:1 AND DAY:3)
     Dates: start: 20181125, end: 20181130
  11. PERIDOL (HALOPERIDOL) [Concomitant]
     Dosage: STRENGTH 5 MILLIGRAM PER MILLILITRE (QUANTITY:3, DAY: 2)
     Dates: start: 20181128, end: 20181202
  12. OXYNORM [Concomitant]
     Active Substance: OXYCODONE HYDROCHLORIDE
     Dosage: 10 MILLIGRAM PER MILLILITRE (QUANTITY:2, DAY: 3)
     Dates: start: 20181115, end: 20181117
  13. MEROPEN [Concomitant]
     Active Substance: MEROPENEM
     Dosage: (QUANTITY:2, DAY: 1)
     Dates: start: 20181125
  14. ATIVAN [Concomitant]
     Active Substance: LORAZEPAM
     Dosage: INJECTION (QUANTITY:1, DAY: 22)
     Dates: start: 20181112, end: 20181201
  15. ATIVAN [Concomitant]
     Active Substance: LORAZEPAM
     Dosage: INJECTION (QUANTITY:2, DAY: 2)
     Dates: start: 20181126, end: 20181203
  16. PERIDOL (HALOPERIDOL) [Concomitant]
     Dosage: STRENGTH 5 MILLIGRAM PER MILLILITRE (QUANTITY:2, DAY: 4)
     Dates: start: 20181113, end: 20181130
  17. TRAVOCORT [Concomitant]
     Active Substance: DIFLUCORTOLONE VALERATE\ISOCONAZOLE NITRATE
     Dosage: UNK (QUANTITY:1, DAY: 1)
     Dates: start: 20181122
  18. DEXTROSE. [Concomitant]
     Active Substance: DEXTROSE
     Dosage: 50 MILLILITER (QUANTITY:1 AND DAY:11)
     Dates: start: 20181119, end: 20181128
  19. OXYNORM [Concomitant]
     Active Substance: OXYCODONE HYDROCHLORIDE
     Dosage: STRENGTH 10 MILLIGRAM PER MILLILITRE (QUANTITY:1, DAY: 5)
     Dates: start: 20181114, end: 20181116
  20. TAZOPERAN [Concomitant]
     Dosage: UNK (QUANTITY:1, DAY: 3)
     Dates: start: 20181122, end: 20181125
  21. FAMOTIDINE. [Concomitant]
     Active Substance: FAMOTIDINE
  22. DEXTROSE. [Concomitant]
     Active Substance: DEXTROSE
  23. MATRIFEN [Concomitant]
     Active Substance: FENTANYL
     Dosage: 1 DOSAGE FORM, STRENGTH 25MCG/H (8.4 CM.SQUARE PER 1 PATCH)
     Dates: start: 20181122, end: 20181207
  24. ALBUMIN HUMAN [Concomitant]
     Active Substance: ALBUMIN HUMAN
     Dosage: 100 MILLILITER (QUANTITY:1, DAY: 4)
     Dates: start: 20181122, end: 20181126
  25. PERIDOL (HALOPERIDOL) [Concomitant]
     Dosage: STRENGTH 5 MILLIGRAM PER MILLILITRE (QUANTITY:4, DAY: 1)
     Dates: start: 20181126
  26. MORPHINE [Concomitant]
     Active Substance: MORPHINE
     Dosage: QUANTITY: 3, DAYS 2
     Dates: start: 20181122, end: 20181125
  27. TAMIPOOL [Concomitant]
     Active Substance: VITAMINS
     Dosage: (QUANTITY 1 AND DAY 20)
     Dates: start: 20181113, end: 20181203
  28. SODIUM CHLORIDE. [Concomitant]
     Active Substance: SODIUM CHLORIDE
     Dosage: UNK (QUANTITY:1 AND DAY:1)
     Dates: start: 20181126, end: 20181126
  29. MORPHINE [Concomitant]
     Active Substance: MORPHINE
     Dosage: QUANTITY: 2, DAYS 1
     Dates: start: 20181121, end: 20181121
  30. MORPHINE [Concomitant]
     Active Substance: MORPHINE
     Dosage: QUANTITY: 10, DAYS 12
     Dates: start: 20181126, end: 20181207
  31. NALOXONE HYDROCHLORIDE. [Concomitant]
     Active Substance: NALOXONE HYDROCHLORIDE
     Dosage: (QUANTITY 1 AND DAY 3)
     Dates: start: 20181114, end: 20181129
  32. MEROPEN [Concomitant]
     Active Substance: MEROPENEM
     Dosage: (QUANTITY:6, DAY: 11)
     Dates: start: 20181126, end: 20181206
  33. DEXTROSE. [Concomitant]
     Active Substance: DEXTROSE
     Dosage: 500 MILLILITER, (QUANTITY:1 AND DAY:4)
     Dates: start: 20181204, end: 20181207
  34. MORPHINE [Concomitant]
     Active Substance: MORPHINE
     Dosage: QUANTITY: 1, DAYS 5
     Dates: start: 20181118, end: 20181126
  35. HUMULIN NOS [Suspect]
     Active Substance: INSULIN HUMAN
  36. DEXTROSE. [Concomitant]
     Active Substance: DEXTROSE
  37. KEYTRUDA [Suspect]
     Active Substance: PEMBROLIZUMAB
     Indication: ENDOMETRIAL CANCER RECURRENT
     Dosage: 2 DOSAGE FORM, ONCE IN ONE DAY, INJECTION
     Dates: start: 20181129, end: 20181129
  38. MATRIFEN [Concomitant]
     Active Substance: FENTANYL
     Dosage: 1 DOSAGE FORM, STRENGTH 12 MCG/H 4.2 CM. SQUARE, FORMULATION: PATCH
     Dates: start: 20181114, end: 20181119
  39. ALBUMIN HUMAN [Concomitant]
     Active Substance: ALBUMIN HUMAN
     Dosage: 50 MILLILITER (QUANTITY:1, DAY: 1)
     Dates: start: 20181116, end: 20181116
  40. SODIUM CHLORIDE. [Concomitant]
     Active Substance: SODIUM CHLORIDE
     Dosage: 50 MILLILITER (QUANTITY: 1, DAY 2)
     Dates: start: 20181112, end: 20181129
  41. SODIUM CHLORIDE. [Concomitant]
     Active Substance: SODIUM CHLORIDE
     Dosage: 50 MILLILITER (QUANTITY: 4, DAY 10)
     Dates: start: 20181112, end: 20181122
  42. FURTMAN [Concomitant]
     Dosage: UNK (QUANTITY:1 AND DAY:2)
     Dates: start: 20181128, end: 20181129
  43. PINE [Concomitant]
     Dosage: STRENGTH 1000 IU (QUANTITY:1 AND DAY: 1)
     Dates: start: 20181120, end: 20181120
  44. MEROPEN [Concomitant]
     Active Substance: MEROPENEM
     Dosage: (QUANTITY:4, DAY: 1)
     Dates: start: 20181125

REACTIONS (2)
  - Product use in unapproved indication [Unknown]
  - Malignant neoplasm progression [Fatal]

NARRATIVE: CASE EVENT DATE: 2018
